FAERS Safety Report 7636729-1 (Version None)
Quarter: 2011Q3

REPORT INFORMATION
  Report Type: 
  Country: None (occurrence: None)
  Receive Date: 20110722
  Receipt Date: 20110722
  Transmission Date: 20111222
  Serious: Yes (Other)
  Sender: FDA-Public Use
  Company Number: None

PATIENT
  Sex: Female
  Weight: 65.7716 kg

DRUGS (2)
  1. DEPO-PROVERA [Suspect]
     Indication: CONTRACEPTION
     Dosage: 150 IM Q12 WEEKS IM
     Route: 030
     Dates: start: 20110517
  2. MEDROXYPROGESTERONE ACETATE [Suspect]
     Indication: CONTRACEPTION
     Dosage: 150 MG Q 12 WEEKS IM
     Route: 030
     Dates: start: 20110222

REACTIONS (1)
  - PREGNANCY ON CONTRACEPTIVE [None]
